FAERS Safety Report 4527922-5 (Version None)
Quarter: 2004Q4

REPORT INFORMATION
  Report Type: 
  Country: None (occurrence: None)
  Receive Date: 20041123
  Receipt Date: 20040428
  Transmission Date: 20050328
  Serious: Yes (Life-Threatening, Hospitalization)
  Sender: FDA-Public Use
  Company Number: 20040400289

PATIENT
  Age: 71 Year
  Sex: Male

DRUGS (3)
  1. MORPHINE SULFATE [Suspect]
     Indication: PAIN
     Dosage: 32.6 MG QD IT
     Route: 037
     Dates: start: 20031106, end: 20040301
  2. MARCAINE [Suspect]
     Indication: PAIN
     Dosage: 7.5 MG QD IT
     Route: 037
     Dates: start: 20031106, end: 20040301
  3. CLONIDINE [Suspect]
     Indication: PAIN
     Dosage: 0.098 MG  IT
     Route: 037
     Dates: start: 20031106, end: 20040301

REACTIONS (5)
  - COMA [None]
  - CONVULSION [None]
  - DEPRESSED LEVEL OF CONSCIOUSNESS [None]
  - SPEECH DISORDER [None]
  - VOMITING [None]
